FAERS Safety Report 9646133 (Version 1)
Quarter: 2013Q4

REPORT INFORMATION
  Report Type: Spontaneous
  Country: FR (occurrence: FR)
  Receive Date: 20131025
  Receipt Date: 20131025
  Transmission Date: 20140711
  Serious: Yes (Other)
  Sender: FDA-Public Use
  Company Number: FR-INCYTE CORPORATION-2013IN002474

PATIENT
  Sex: 0

DRUGS (6)
  1. JAKAVI [Suspect]
     Indication: POLYCYTHAEMIA
     Dosage: 15 MG, UNK
     Dates: start: 201107, end: 2012
  2. JAKAVI [Suspect]
     Dosage: 15 MG, BID
     Dates: start: 201206
  3. ALLOPURINOL [Concomitant]
  4. LASILIX [Concomitant]
  5. ALDACTONE [Concomitant]
  6. TRAMADOL [Concomitant]

REACTIONS (3)
  - Pulmonary arterial hypertension [Not Recovered/Not Resolved]
  - Dyspnoea [Not Recovered/Not Resolved]
  - Cardiac failure [Not Recovered/Not Resolved]
